FAERS Safety Report 9787992 (Version 1)
Quarter: 2013Q4

REPORT INFORMATION
  Report Type: Spontaneous
  Country: US (occurrence: None)
  Receive Date: 20131227
  Receipt Date: 20131227
  Transmission Date: 20140711
  Serious: Yes (Disabling, Other)
  Sender: FDA-Public Use
  Company Number: None

PATIENT
  Age: 10 Year
  Sex: Male
  Weight: 38.1 kg

DRUGS (1)
  1. METHYLPHENIDATE ER [Suspect]
     Indication: ATTENTION DEFICIT/HYPERACTIVITY DISORDER
     Dosage: 1 TABLET  ONCE DAILY TAKEN BY MOUTH
     Route: 048
     Dates: start: 20131202, end: 20131223

REACTIONS (10)
  - Dysarthria [None]
  - Musculoskeletal disorder [None]
  - Musculoskeletal disorder [None]
  - Dyskinesia [None]
  - Eye movement disorder [None]
  - Attention deficit/hyperactivity disorder [None]
  - Disturbance in attention [None]
  - Activities of daily living impaired [None]
  - Product substitution issue [None]
  - Product quality issue [None]
